FAERS Safety Report 8821447 (Version 1)
Quarter: 2012Q4

REPORT INFORMATION
  Report Type: 
  Country: ZA (occurrence: ZA)
  Receive Date: 20121002
  Receipt Date: 20121002
  Transmission Date: 20130627
  Serious: Yes (Other)
  Sender: FDA-Public Use
  Company Number: PHHY2012ZA083566

PATIENT
  Sex: Male

DRUGS (3)
  1. METFORMIN [Suspect]
     Indication: TYPE 2 DIABETES MELLITUS
     Route: 048
     Dates: start: 2005
  2. METFORMIN [Suspect]
     Dosage: 750 mg, UNK
     Route: 048
  3. CHEMOTHERAPEUTICS [Concomitant]

REACTIONS (3)
  - Malignant melanoma [Not Recovered/Not Resolved]
  - Metastases to liver [Not Recovered/Not Resolved]
  - Blood glucose increased [Not Recovered/Not Resolved]
